FAERS Safety Report 4555859-4 (Version None)
Quarter: 2005Q1

REPORT INFORMATION
  Report Type: 
  Country: None (occurrence: None)
  Receive Date: 20050118
  Receipt Date: 20041208
  Transmission Date: 20050727
  Serious: No
  Sender: FDA-Public Use
  Company Number: A03200404147

PATIENT
  Age: 67 Year
  Sex: Male

DRUGS (1)
  1. UROXATRAL [Suspect]
     Dosage: ORAL
     Route: 048

REACTIONS (3)
  - ERYTHEMA [None]
  - NECK PAIN [None]
  - PHARYNGOLARYNGEAL PAIN [None]
